FAERS Safety Report 9217546 (Version 3)
Quarter: 2013Q2

REPORT INFORMATION
  Report Type: Spontaneous
  Country: IT (occurrence: IT)
  Receive Date: 20130408
  Receipt Date: 20130506
  Transmission Date: 20140414
  Serious: Yes (Hospitalization)
  Sender: FDA-Public Use
  Company Number: IT-ROCHE-1210727

PATIENT
  Age: 46 Year
  Sex: Male

DRUGS (2)
  1. RIVOTRIL [Suspect]
     Indication: SEDATION
     Route: 048
     Dates: start: 20130330, end: 20130330
  2. TRITTICO [Suspect]
     Indication: SEDATION
     Route: 048
     Dates: start: 20130330, end: 20130330

REACTIONS (6)
  - Bradykinesia [Recovered/Resolved]
  - Bradyphrenia [Recovered/Resolved]
  - Sopor [Recovered/Resolved]
  - Drug abuse [Unknown]
  - Intentional self-injury [Unknown]
  - Overdose [Unknown]
